FAERS Safety Report 7657624-8 (Version None)
Quarter: 2011Q3

REPORT INFORMATION
  Report Type: 
  Country: None (occurrence: None)
  Receive Date: 20110804
  Receipt Date: 20110726
  Transmission Date: 20111222
  Serious: Yes (Other)
  Sender: FDA-Public Use
  Company Number: US-ASTRAZENECA-2011SE44790

PATIENT
  Age: 34 Year
  Sex: Female

DRUGS (2)
  1. VIMOVO [Suspect]
     Dosage: 500/20MG BIB
     Route: 048
     Dates: start: 20110622
  2. LYRICA [Concomitant]

REACTIONS (1)
  - WEIGHT INCREASED [None]
